FAERS Safety Report 4480065-1 (Version None)
Quarter: 2004Q4

REPORT INFORMATION
  Report Type: 
  Country: None (occurrence: None)
  Receive Date: 20041018
  Receipt Date: 20041005
  Transmission Date: 20050328
  Serious: Yes (Other)
  Sender: FDA-Public Use
  Company Number: 2004075578

PATIENT
  Age: 9 Year
  Sex: Female

DRUGS (2)
  1. ZOLOFT [Suspect]
     Indication: EATING DISORDER
     Dates: start: 20020101
  2. PAROXETINE HCL [Suspect]
     Indication: EATING DISORDER
     Dosage: ORAL
     Route: 048
     Dates: start: 20020101

REACTIONS (3)
  - ABNORMAL BEHAVIOUR [None]
  - AGGRESSION [None]
  - SUICIDAL IDEATION [None]
